FAERS Safety Report 9983405 (Version 1)
Quarter: 2014Q1

REPORT INFORMATION
  Report Type: Spontaneous
  Country: GB (occurrence: GB)
  Receive Date: 20140307
  Receipt Date: 20140307
  Transmission Date: 20141002
  Serious: Yes (Other)
  Sender: FDA-Public Use
  Company Number: GB-ACTAVIS-2014-03624

PATIENT
  Age: 17 Year
  Sex: Male

DRUGS (3)
  1. CO-CODAMOL [Suspect]
     Indication: ARTHRALGIA
     Dosage: 30/500MG; UNK
     Route: 048
     Dates: start: 20140207, end: 20140207
  2. MONTELUKAST [Concomitant]
     Indication: PRODUCT USED FOR UNKNOWN INDICATION
     Dosage: UNK
     Route: 065
  3. SERETIDE [Concomitant]
     Indication: PRODUCT USED FOR UNKNOWN INDICATION
     Dosage: UNK
     Route: 065

REACTIONS (3)
  - Hypersensitivity [Recovered/Resolved]
  - Lip swelling [Recovered/Resolved]
  - Oral pruritus [Recovered/Resolved]
